FAERS Safety Report 8555897-0 (Version None)
Quarter: 2012Q3

REPORT INFORMATION
  Report Type: 
  Country: None (occurrence: None)
  Receive Date: 20120801
  Receipt Date: 20120726
  Transmission Date: 20120928
  Serious: No
  Sender: FDA-Public Use
  Company Number: US-BIOGENIDEC-2012BI026441

PATIENT
  Sex: Female

DRUGS (1)
  1. AVONEX [Suspect]
     Indication: MULTIPLE SCLEROSIS
     Route: 030
     Dates: start: 20010530

REACTIONS (5)
  - ADVERSE EVENT [None]
  - ANXIETY [None]
  - PAIN IN EXTREMITY [None]
  - INJECTION SITE SCAR [None]
  - SCAR [None]
